FAERS Safety Report 6027563-7 (Version None)
Quarter: 2009Q1

REPORT INFORMATION
  Report Type: 
  Country: None (occurrence: None)
  Receive Date: 20090105
  Receipt Date: 20081223
  Transmission Date: 20090719
  Serious: Yes (Death, Other)
  Sender: FDA-Public Use
  Company Number: GR-ELI_LILLY_AND_COMPANY-GR200807000327

PATIENT
  Age: 66 Year
  Sex: Male

DRUGS (2)
  1. ZYPREXA [Suspect]
     Indication: SCHIZOPHRENIA, RESIDUAL TYPE
     Dosage: 10 MG, DAILY (1/D)
     Route: 048
  2. AMITRIPTYLINE WITH PERPHENAZINE [Concomitant]
     Indication: SCHIZOPHRENIA, RESIDUAL TYPE
     Dosage: 30 MG, EACH EVENING
     Route: 047

REACTIONS (5)
  - NEUROLEPTIC MALIGNANT SYNDROME [None]
  - PANCYTOPENIA [None]
  - PULMONARY EMBOLISM [None]
  - RENAL FAILURE ACUTE [None]
  - SHOCK [None]
